FAERS Safety Report 6510486-4 (Version None)
Quarter: 2009Q4

REPORT INFORMATION
  Report Type: 
  Country: None (occurrence: None)
  Receive Date: 20091221
  Receipt Date: 20091221
  Transmission Date: 20100525
  Serious: Yes (Other)
  Sender: FDA-Public Use
  Company Number: None

PATIENT
  Age: 47 Year
  Sex: Male
  Weight: 95.2554 kg

DRUGS (2)
  1. VIVITROL [Suspect]
     Indication: ALCOHOLISM
     Dosage: ONE INJECTION ONCE A MONTH IM, MONTHLY SHOT
     Route: 030
     Dates: start: 20091117, end: 20091129
  2. VIVITROL [Suspect]
     Indication: ALCOHOLISM
     Dosage: ONE INJECTION ONCE A MONTH IM, MONTHLY SHOT
     Route: 030
     Dates: start: 20091214, end: 20091229

REACTIONS (6)
  - DRUG INEFFECTIVE [None]
  - LIP SWELLING [None]
  - SLEEP APNOEA SYNDROME [None]
  - SPEECH DISORDER [None]
  - SWELLING FACE [None]
  - SWOLLEN TONGUE [None]
